FAERS Safety Report 9882350 (Version 6)
Quarter: 2014Q4

REPORT INFORMATION
  Report Type: Spontaneous
  Country: US (occurrence: US)
  Receive Date: 20140207
  Receipt Date: 20141110
  Transmission Date: 20150529
  Serious: Yes (Hospitalization, Other)
  Sender: FDA-Public Use
  Company Number: US-GLAXOSMITHKLINE-A1060055A

PATIENT
  Age: 11 Year
  Sex: Female
  Weight: 38 kg

DRUGS (7)
  1. FLOLAN [Suspect]
     Active Substance: EPOPROSTENOL SODIUM
     Dates: start: 20140130, end: 20140613
  2. REVATIO [Concomitant]
     Active Substance: SILDENAFIL CITRATE
  3. DIGOXIN. [Concomitant]
     Active Substance: DIGOXIN
  4. FLOLAN [Suspect]
     Active Substance: EPOPROSTENOL SODIUM
     Indication: PULMONARY ARTERIAL HYPERTENSION
     Dosage: 57 NG/KG/MIN AT 45,000 NG/ML CONCENTRATION AND 1.5 MG VIAL STRENGTHPUMP RATE 69 ML/DAYFLOLAN WA[...]
     Route: 042
     Dates: start: 20140130, end: 20140613
  5. LETAIRIS [Concomitant]
     Active Substance: AMBRISENTAN
  6. LASIX [Concomitant]
     Active Substance: FUROSEMIDE
  7. REMODULIN [Concomitant]
     Active Substance: TREPROSTINIL
     Indication: PULMONARY ARTERIAL HYPERTENSION
     Route: 042
     Dates: end: 20140130

REACTIONS (7)
  - Chest pain [Recovered/Resolved]
  - Lung transplant [Recovered/Resolved]
  - Disease progression [Recovered/Resolved]
  - Hospitalisation [Recovered/Resolved]
  - Myocardial infarction [Recovered/Resolved]
  - Dizziness [Recovered/Resolved]
  - Headache [Recovered/Resolved]

NARRATIVE: CASE EVENT DATE: 20140130
